FAERS Safety Report 13413343 (Version 3)
Quarter: 2017Q2

REPORT INFORMATION
  Report Type: Report from Study
  Country: ZA (occurrence: ZA)
  Receive Date: 20170407
  Receipt Date: 20170628
  Transmission Date: 20170830
  Serious: Yes (Hospitalization)
  Sender: FDA-Public Use
  Company Number: PHHY2017ZA050063

PATIENT
  Sex: Female

DRUGS (4)
  1. SLOW K [Suspect]
     Active Substance: POTASSIUM CHLORIDE
     Indication: SUPPLEMENTATION THERAPY
     Dosage: UNK
     Route: 065
     Dates: start: 2016
  2. DESFERAL [Suspect]
     Active Substance: DEFEROXAMINE MESYLATE
     Indication: THALASSAEMIA
     Dosage: (8 VIALS EVERY SECOND NIGHT ADMINISTERED)
     Route: 065
     Dates: start: 1994
  3. FERIPROX [Suspect]
     Active Substance: DEFERIPRONE
     Indication: THALASSAEMIA
     Dosage: 11 DF, QD
     Route: 065
     Dates: start: 2012
  4. LASIX [Suspect]
     Active Substance: FUROSEMIDE
     Indication: PULMONARY OEDEMA
     Dosage: UNK
     Route: 065
     Dates: start: 2016

REACTIONS (5)
  - Skin cancer [Unknown]
  - Vomiting [Unknown]
  - Off label use [Unknown]
  - Tachycardia [Unknown]
  - Inappropriate schedule of drug administration [Unknown]

NARRATIVE: CASE EVENT DATE: 2015
